FAERS Safety Report 6852463-X (Version None)
Quarter: 2010Q3

REPORT INFORMATION
  Report Type: 
  Country: None (occurrence: None)
  Receive Date: 20100717
  Receipt Date: 20071114
  Transmission Date: 20110219
  Serious: No
  Sender: FDA-Public Use
  Company Number: US-PFIZER INC-2007098065

PATIENT
  Sex: Male

DRUGS (1)
  1. CHANTIX [Suspect]

REACTIONS (2)
  - LOCAL SWELLING [None]
  - SWELLING FACE [None]
